FAERS Safety Report 5959974-X (Version None)
Quarter: 2008Q4

REPORT INFORMATION
  Report Type: 
  Country: None (occurrence: None)
  Receive Date: 20081120
  Receipt Date: 20081112
  Transmission Date: 20090506
  Serious: Yes (Other)
  Sender: FDA-Public Use
  Company Number: GB-MERCK-0811GBR00048

PATIENT
  Sex: Female

DRUGS (1)
  1. BLOCADREN [Suspect]
     Route: 047

REACTIONS (2)
  - DRUG HYPERSENSITIVITY [None]
  - EYE DISORDER [None]
